FAERS Safety Report 9835935 (Version 2)
Quarter: 2014Q1

REPORT INFORMATION
  Report Type: Spontaneous
  Country: JP (occurrence: JP)
  Receive Date: 20140122
  Receipt Date: 20140128
  Transmission Date: 20141002
  Serious: Yes (Hospitalization)
  Sender: FDA-Public Use
  Company Number: JP-TAKEDA-2014TJP000722

PATIENT
  Age: 46 Year
  Sex: Male
  Weight: 89 kg

DRUGS (1)
  1. LANSAP 400 [Suspect]
     Indication: HELICOBACTER GASTRITIS
     Dosage: 0.5 DF, BID
     Route: 048
     Dates: start: 20140115, end: 20140116

REACTIONS (1)
  - Prurigo [Recovering/Resolving]
